FAERS Safety Report 9257100 (Version 1)
Quarter: 2013Q2

REPORT INFORMATION
  Report Type: Spontaneous
  Country: NO (occurrence: None)
  Receive Date: 20130424
  Receipt Date: 20130424
  Transmission Date: 20140414
  Serious: Yes (Hospitalization, Other)
  Sender: FDA-Public Use
  Company Number: SYM-2013-02933

PATIENT
  Age: 52 Year
  Sex: Male

DRUGS (3)
  1. FLUOROURACIL [Suspect]
     Indication: COLON CANCER
     Route: 040
     Dates: start: 199908
  2. OXALIPLATIN [Suspect]
     Indication: COLON CANCER
     Dosage: INTRAVENOUS (NOT OTHERWISE SPECIFIED)?
     Route: 042
     Dates: start: 199908
  3. CALCIUM FOLINATE [Suspect]
     Indication: COLON CANCER
     Route: 040
     Dates: start: 199908

REACTIONS (7)
  - Thrombocytopenia [None]
  - Pyrexia [None]
  - Haemolysis [None]
  - Neutropenia [None]
  - Back pain [None]
  - Catheter site haemorrhage [None]
  - Evans syndrome [None]
